FAERS Safety Report 5863640-9 (Version None)
Quarter: 2008Q3

REPORT INFORMATION
  Report Type: 
  Country: None (occurrence: None)
  Receive Date: 20080828
  Receipt Date: 20080818
  Transmission Date: 20090109
  Serious: Yes (Other)
  Sender: FDA-Public Use
  Company Number: US-PFIZER INC-2008069523

PATIENT
  Age: 82 Year
  Sex: Female

DRUGS (11)
  1. TIKOSYN [Suspect]
     Indication: ATRIAL FIBRILLATION
     Route: 048
  2. ZEAXANTHIN [Interacting]
     Indication: MACULAR DEGENERATION
     Dosage: FREQ:DAILY
     Dates: start: 20080101, end: 20080101
  3. SIMVASTATIN [Concomitant]
  4. AMLODIPINE BESYLATE [Concomitant]
  5. BISOPROLOL FUMARATE [Concomitant]
  6. CIPROFLOXACIN [Concomitant]
  7. PREMPRO [Concomitant]
  8. ASPIRIN [Concomitant]
  9. PRILOSEC [Concomitant]
  10. ZOLPIDEM [Concomitant]
  11. ACULAR PRESERVATIVE FREE [Concomitant]

REACTIONS (3)
  - ATRIAL FIBRILLATION [None]
  - DRUG INTERACTION [None]
  - MACULAR DEGENERATION [None]
